FAERS Safety Report 21984734 (Version 1)
Quarter: 2023Q1

REPORT INFORMATION
  Report Type: Spontaneous
  Country: US (occurrence: US)
  Receive Date: 20230213
  Receipt Date: 20230213
  Transmission Date: 20230418
  Serious: Yes (Hospitalization)
  Sender: FDA-Public Use
  Company Number: US-ARBOR PHARMACEUTICALS, LLC-US-2023ARB000212

PATIENT
  Sex: Male

DRUGS (3)
  1. SOTALOL HYDROCHLORIDE [Suspect]
     Active Substance: SOTALOL HYDROCHLORIDE
     Indication: Arrhythmia supraventricular
     Dosage: UNK
  2. ADENOSINE [Concomitant]
     Active Substance: ADENOSINE
     Indication: Supraventricular tachycardia
     Dosage: UNK
  3. ADENOSINE [Concomitant]
     Active Substance: ADENOSINE
     Indication: Tachycardia induced cardiomyopathy

REACTIONS (1)
  - Wolff-Parkinson-White syndrome [Unknown]
